FAERS Safety Report 18511854 (Version 1)
Quarter: 2020Q4

REPORT INFORMATION
  Report Type: Spontaneous
  Country: DE (occurrence: DE)
  Receive Date: 20201117
  Receipt Date: 20201117
  Transmission Date: 20210114
  Serious: Yes (Other)
  Sender: FDA-Public Use
  Company Number: NVSC2020DE305652

PATIENT

DRUGS (14)
  1. IFOSFAMIDE. [Suspect]
     Active Substance: IFOSFAMIDE
     Dosage: 800 MG/M2 CYCLE 1-3; 1 CYCLE EQUALS TO 2 WEEKS; DAYS 2-4)
     Route: 042
  2. ARA-C [Suspect]
     Active Substance: CYTARABINE
     Dosage: 3000 MG/M2 (CYCLE 4 PLUS 6; 1 CYCLE EQUALS TO 3 WEEKS; DAYS 1-2)
     Route: 042
  3. METHOTREXATE. [Suspect]
     Active Substance: METHOTREXATE
     Indication: CENTRAL NERVOUS SYSTEM LYMPHOMA
     Dosage: 4000 MG/M2 (CYCLE 5; 1 CYCLE EQUALS TO 2 WEEKS; DAY 1)
     Route: 042
  4. METHOTREXATE. [Suspect]
     Active Substance: METHOTREXATE
     Dosage: 4000 MG/M2 (CYCLE 1-3; 1 CYCLE EQUALS TO 2 WEEKS; DAY 1)
     Route: 042
  5. ACICLOVIR [Suspect]
     Active Substance: ACYCLOVIR
     Indication: PRODUCT USED FOR UNKNOWN INDICATION
     Dosage: UNK, AT EACH CYCLE
     Route: 065
  6. IFOSFAMIDE. [Suspect]
     Active Substance: IFOSFAMIDE
     Indication: PRODUCT USED FOR UNKNOWN INDICATION
     Dosage: 800 MG/M2 (CYCLE 5; 1 CYCLE EQUALS TO 2 WEEKS; DAYS 2-4)
     Route: 042
  7. METHOTREXATE. [Suspect]
     Active Substance: METHOTREXATE
     Dosage: 2.5 MG (CYCLE 5; 1 CYCLE EQUALS TO 2 WEEKS; DAYS 2-4) WITH PREDNISOLONE
     Route: 065
  8. PREDNISOLONE. [Suspect]
     Active Substance: PREDNISOLONE
     Dosage: 3 MG ICV (CYCLE 5; 1 CYCLE EQUALS TO 2 WEEKS; DAYS 2-4) WITH MTX
     Route: 065
  9. ARA-C [Suspect]
     Active Substance: CYTARABINE
     Dosage: 10 MG (CYCLE 4 PLUS 6; 1 CYCLE EQUALS TO 3 WEEKS; DAY 6)
     Route: 016
  10. ARA-C [Suspect]
     Active Substance: CYTARABINE
     Indication: CENTRAL NERVOUS SYSTEM LYMPHOMA
     Dosage: 10 MG (CYCLE 5; 1 CYCLE EQUALS TO 2 WEEKS; DAY 5)
     Route: 016
  11. RITUXIMAB. [Suspect]
     Active Substance: RITUXIMAB
     Indication: CENTRAL NERVOUS SYSTEM LYMPHOMA
     Dosage: 375 MG/M2 (CYCLE 1-3; 1 CYCLE EQUALS TO 2 WEEKS; DAY 0)
     Route: 042
  12. PREDNISOLONE. [Suspect]
     Active Substance: PREDNISOLONE
     Indication: CENTRAL NERVOUS SYSTEM LYMPHOMA
     Dosage: 3 MG ICV (CYCLE 4 PLUS 6; 1 CYCLE EQUALS TO 3 WEEKS; DAYS 3-5) WITH MTX
     Route: 065
  13. METHOTREXATE. [Suspect]
     Active Substance: METHOTREXATE
     Dosage: 2.5 MG (CYCLE 4 PLUS 6; 1 CYCLE EQUALS TO 3 WEEKS; DAYS 3-5) WITH PREDNISOLONE
     Route: 065
  14. SULFAMETHOXAZOLE,TRIMETHOPRIM [Suspect]
     Active Substance: SULFAMETHOXAZOLE\TRIMETHOPRIM
     Indication: PRODUCT USED FOR UNKNOWN INDICATION
     Dosage: UNK, AT EACH CYCLE
     Route: 065

REACTIONS (1)
  - Escherichia infection [Unknown]
